FAERS Safety Report 10398925 (Version 1)
Quarter: 2014Q3

REPORT INFORMATION
  Report Type: Report from Study
  Country: DE (occurrence: DE)
  Receive Date: 20140821
  Receipt Date: 20140821
  Transmission Date: 20150326
  Serious: Yes (Hospitalization)
  Sender: FDA-Public Use
  Company Number: DE-BAYER-2014-120573

PATIENT
  Sex: Female

DRUGS (13)
  1. BICANORM [Concomitant]
     Active Substance: SODIUM BICARBONATE
     Indication: METABOLIC ACIDOSIS
     Dosage: 1 G, 1-0-0
     Route: 048
     Dates: start: 20140305
  2. KALINOR [Concomitant]
     Active Substance: POTASSIUM CITRATE
     Indication: HYPOKALAEMIA
     Dosage: 600 MG, 1-0-1
     Route: 048
     Dates: start: 20140514
  3. LOPERAMID [Concomitant]
     Active Substance: LOPERAMIDE
     Indication: DIARRHOEA
     Dosage: 2 MG, PRN
     Route: 048
     Dates: start: 20140514
  4. SORAFENIB (RAF KINASE INHIBITOR) [Suspect]
     Active Substance: SORAFENIB
     Indication: RENAL CELL CARCINOMA
     Dosage: DAILY DOSE 800 MG
     Dates: start: 20140220, end: 20140605
  5. PAZOPANIB [Suspect]
     Active Substance: PAZOPANIB
     Indication: RENAL CELL CARCINOMA
  6. JANUVIA [Concomitant]
     Active Substance: SITAGLIPTIN PHOSPHATE
     Indication: DIABETES MELLITUS
     Dosage: 50 MG; 1-0-0
     Route: 048
     Dates: start: 2012
  7. PREDNISOLON [Concomitant]
     Active Substance: PREDNISOLONE
     Indication: RASH
     Dosage: 500 MG, ONCE
     Route: 042
     Dates: start: 20140306, end: 20140306
  8. RED BLOOD CELLS, CONCENTRATED [Concomitant]
     Active Substance: HUMAN RED BLOOD CELL
     Indication: ANAEMIA
     Dosage: 2 PACKS
     Route: 042
     Dates: start: 20140217, end: 20140217
  9. CALCIUM W/VITAMIN D NOS [Concomitant]
     Active Substance: CALCIUM\VITAMIN D
     Indication: HYPOCALCAEMIA
     Dosage: 600 MG/440 IE, 1-0-0
  10. SODIUM BICARBONATE. [Concomitant]
     Active Substance: SODIUM BICARBONATE
     Indication: HYPERKALAEMIA
     Dosage: 100 ML, 2X
     Route: 042
     Dates: start: 20140305, end: 20140306
  11. DIURSAN [Concomitant]
     Indication: HYPERTENSION
     Dosage: 1-0-0
     Route: 048
     Dates: start: 1998, end: 20140417
  12. PREDNISOLON [Concomitant]
     Active Substance: PREDNISOLONE
     Indication: RASH
     Dosage: 1 G, ONCE
     Route: 042
     Dates: start: 20140305, end: 20140305
  13. MOVICOL [Concomitant]
     Active Substance: POLYETHYLENE GLYCOL 3350\POTASSIUM CHLORIDE\SODIUM BICARBONATE\SODIUM CHLORIDE
     Indication: CONSTIPATION
     Dosage: BAG, 1-0-1
     Route: 048
     Dates: start: 20140318, end: 20140321

REACTIONS (5)
  - Diarrhoea [None]
  - Blood potassium decreased [None]
  - Syncope [Recovered/Resolved]
  - Dehydration [None]
  - Blood calcium decreased [None]

NARRATIVE: CASE EVENT DATE: 20140604
